FAERS Safety Report 17081557 (Version 1)
Quarter: 2019Q4

REPORT INFORMATION
  Report Type: Spontaneous
  Country: US (occurrence: US)
  Receive Date: 20191030
  Receipt Date: 20191030
  Transmission Date: 20200122
  Serious: Yes (Hospitalization)
  Sender: FDA-Public Use
  Company Number: None

PATIENT
  Age: 57 Year
  Sex: Male

DRUGS (22)
  1. ADVAIR HFA [Concomitant]
     Active Substance: FLUTICASONE PROPIONATE\SALMETEROL XINAFOATE
  2. DICLOFENAC [Concomitant]
     Active Substance: DICLOFENAC
  3. FENOFIBRATE. [Concomitant]
     Active Substance: FENOFIBRATE
  4. SYNTHROID [Concomitant]
     Active Substance: LEVOTHYROXINE SODIUM
  5. CICLOPIROX. [Concomitant]
     Active Substance: CICLOPIROX
  6. LEVOTHYROXIN [Concomitant]
     Active Substance: LEVOTHYROXINE
  7. QUETIAPINE. [Concomitant]
     Active Substance: QUETIAPINE
  8. COSENTYX [Suspect]
     Active Substance: SECUKINUMAB
     Indication: PSORIASIS
     Dosage: ?          OTHER FREQUENCY:Q 28 DAYS ;?
     Route: 058
     Dates: start: 20180222
  9. ALPRAZOLAM. [Concomitant]
     Active Substance: ALPRAZOLAM
  10. CLOBETASOL [Concomitant]
     Active Substance: CLOBETASOL
  11. FLOVENT [Concomitant]
     Active Substance: FLUTICASONE PROPIONATE
  12. LOVASTATIN. [Concomitant]
     Active Substance: LOVASTATIN
  13. ARIPIPRAZOLAM [Concomitant]
  14. OMEPRAZOLE. [Concomitant]
     Active Substance: OMEPRAZOLE
  15. SYMBICORT [Concomitant]
     Active Substance: BUDESONIDE\FORMOTEROL FUMARATE DIHYDRATE
  16. ESCITALOPRAM [Concomitant]
     Active Substance: ESCITALOPRAM OXALATE
  17. PREDNISONE. [Concomitant]
     Active Substance: PREDNISONE
  18. ALBUTEROL. [Concomitant]
     Active Substance: ALBUTEROL
  19. AMOX/K CLAV [Concomitant]
     Active Substance: AMOXICILLIN\CLAVULANATE POTASSIUM
  20. MONTELUKAST [Concomitant]
     Active Substance: MONTELUKAST SODIUM
  21. TESTOST [Concomitant]
  22. XANAX [Concomitant]
     Active Substance: ALPRAZOLAM

REACTIONS (1)
  - Road traffic accident [None]

NARRATIVE: CASE EVENT DATE: 20190809
